FAERS Safety Report 15458531 (Version 1)
Quarter: 2018Q4

REPORT INFORMATION
  Report Type: Spontaneous
  Country: NL (occurrence: NL)
  Receive Date: 20181003
  Receipt Date: 20181003
  Transmission Date: 20190204
  Serious: Yes (Hospitalization, Disabling, Other)
  Sender: FDA-Public Use
  Company Number: NL-AUROBINDO-AUR-APL-2018-048287

PATIENT
  Sex: Male

DRUGS (3)
  1. LERDIP [Concomitant]
     Indication: HYPERTENSION
     Dosage: UNK
     Route: 065
  2. BISOPROLOL [Suspect]
     Active Substance: BISOPROLOL
     Indication: HYPERTENSION
     Dosage: UNK
     Route: 065
  3. DOXAZOSIN [Concomitant]
     Active Substance: DOXAZOSIN\DOXAZOSIN MESYLATE
     Indication: HYPERTENSION
     Dosage: UNK
     Route: 065

REACTIONS (12)
  - Syncope [Unknown]
  - Urinary incontinence [Unknown]
  - Pain in extremity [Unknown]
  - Headache [Unknown]
  - Paraesthesia oral [Unknown]
  - Asthenia [Unknown]
  - Paraesthesia [Unknown]
  - Gait disturbance [Unknown]
  - Hypoaesthesia [Unknown]
  - Hemiparesis [Unknown]
  - Cerebrovascular accident [Unknown]
  - Muscular weakness [Unknown]

NARRATIVE: CASE EVENT DATE: 20161102
